FAERS Safety Report 6011607-2 (Version None)
Quarter: 2008Q4

REPORT INFORMATION
  Report Type: 
  Country: None (occurrence: None)
  Receive Date: 20081218
  Receipt Date: 20080922
  Transmission Date: 20090506
  Serious: No
  Sender: FDA-Public Use
  Company Number: US-ASTRAZENECA-2008UW19769

PATIENT
  Age: 92 Year
  Sex: Male
  Weight: 77.1 kg

DRUGS (4)
  1. CRESTOR [Suspect]
     Indication: BLOOD CHOLESTEROL INCREASED
     Route: 048
     Dates: start: 20060901
  2. AVANDIA [Concomitant]
  3. LYRICA [Concomitant]
  4. ATACAND [Concomitant]
     Route: 048
     Dates: start: 20060901

REACTIONS (2)
  - FEELING ABNORMAL [None]
  - RASH MACULAR [None]
